FAERS Safety Report 20740667 (Version 1)
Quarter: 2022Q2

REPORT INFORMATION
  Report Type: Spontaneous
  Country: IL (occurrence: IL)
  Receive Date: 20220422
  Receipt Date: 20220422
  Transmission Date: 20220720
  Serious: Yes (Hospitalization)
  Sender: FDA-Public Use
  Company Number: IL-ORGANON-O2204ISR001636

PATIENT
  Age: 26 Year
  Sex: Female
  Weight: 100 kg

DRUGS (8)
  1. MOMETASONE FUROATE [Suspect]
     Active Substance: MOMETASONE FUROATE
     Indication: Dermatitis atopic
     Dosage: 1 IN 1 D
     Route: 061
     Dates: start: 20190224, end: 20190313
  2. UPADACITINIB [Suspect]
     Active Substance: UPADACITINIB
     Dosage: UNK
     Route: 048
     Dates: start: 20190224, end: 20220315
  3. DESONIDE [Suspect]
     Active Substance: DESONIDE
     Indication: Dermatitis atopic
     Dosage: 1 IN 1 D
     Route: 061
     Dates: start: 20190314, end: 20190320
  4. YAZ [Concomitant]
     Active Substance: DROSPIRENONE\ETHINYL ESTRADIOL
     Indication: Premenstrual dysphoric disorder
     Dosage: 3 MG (3 MG, 1 IN 1 D)
     Route: 048
     Dates: start: 2014
  5. CIPRALEX [Concomitant]
     Active Substance: ESCITALOPRAM OXALATE
     Indication: Premenstrual dysphoric disorder
     Dosage: 10 MG (10 MG, 1 IN 1 D)
     Route: 048
     Dates: start: 2014
  6. ZINDACLINE [Concomitant]
     Indication: Hidradenitis
     Dosage: 1 APPLICATION (2 IN 1 D)
     Route: 061
     Dates: start: 20191202
  7. VERRUMAL [DIMETHYL SULFOXIDE;FLUOROURACIL;SALICYLIC ACID] [Concomitant]
     Indication: Skin papilloma
     Dosage: 1 AS REQUIRED
     Route: 061
     Dates: start: 20210202
  8. MONOCHLOROACETIC ACID [Concomitant]
     Indication: Skin papilloma
     Dosage: 1 AS REQUIRED
     Route: 061
     Dates: start: 20210204

REACTIONS (1)
  - Herpes zoster [Recovered/Resolved]

NARRATIVE: CASE EVENT DATE: 20220307
